FAERS Safety Report 4658546-7 (Version None)
Quarter: 2005Q2

REPORT INFORMATION
  Report Type: 
  Country: None (occurrence: None)
  Receive Date: 20050509
  Receipt Date: 20050421
  Transmission Date: 20051028
  Serious: Yes (Other)
  Sender: FDA-Public Use
  Company Number: DSA_60486_2005

PATIENT
  Age: 54 Year
  Sex: Male
  Weight: 78.4723 kg

DRUGS (5)
  1. MYSOLINE [Suspect]
     Indication: GRAND MAL CONVULSION
     Dosage: 250 MG BID PO
     Route: 048
     Dates: start: 20050401
  2. MYSOLINE [Suspect]
     Dosage: 250 MG BID PO
     Route: 048
  3. VICODIN [Concomitant]
  4. LAMICTAL [Concomitant]
  5. DILANTIN [Concomitant]

REACTIONS (7)
  - CONDITION AGGRAVATED [None]
  - CONVULSION [None]
  - HEADACHE [None]
  - HYPERSOMNIA [None]
  - INAPPROPRIATE SCHEDULE OF DRUG ADMINISTRATION [None]
  - PHARMACEUTICAL PRODUCT COMPLAINT [None]
  - SOMNOLENCE [None]
